FAERS Safety Report 10163017 (Version 3)
Quarter: 2014Q2

REPORT INFORMATION
  Report Type: Spontaneous
  Country: GB (occurrence: GB)
  Receive Date: 20140509
  Receipt Date: 20140602
  Transmission Date: 20141212
  Serious: Yes (Hospitalization, Disabling)
  Sender: FDA-Public Use
  Company Number: PHHY2014GB014868

PATIENT
  Age: 66 Year
  Sex: Female

DRUGS (4)
  1. SIMVASTATIN [Suspect]
     Indication: HYPERCHOLESTEROLAEMIA
     Dosage: 40 MG, QD
     Dates: start: 2004, end: 20140110
  2. RIFAXIMIN [Suspect]
     Indication: ENCEPHALOPATHY
     Dosage: 550 MG, UNK
     Route: 048
     Dates: start: 201312
  3. SPIRONOLACTONE [Concomitant]
     Indication: OEDEMA
     Dosage: 100 MG, UNK
     Route: 048
  4. LACTULOSE [Concomitant]
     Dosage: 10 ML, UNK
     Route: 048

REACTIONS (3)
  - Rhabdomyolysis [Recovered/Resolved]
  - Blood creatine phosphokinase increased [Recovered/Resolved]
  - Drug interaction [Recovered/Resolved]
